FAERS Safety Report 4474658-5 (Version None)
Quarter: 2004Q4

REPORT INFORMATION
  Report Type: 
  Country: None (occurrence: None)
  Receive Date: 20041014
  Receipt Date: 20040701
  Transmission Date: 20050328
  Serious: Yes (Other)
  Sender: FDA-Public Use
  Company Number: PHHO2004JP09448

PATIENT
  Age: 67 Year
  Sex: Male
  Weight: 57 kg

DRUGS (2)
  1. GLEEVEC [Suspect]
     Indication: CHRONIC MYELOID LEUKAEMIA
     Dosage: 400 MG, QD
     Route: 048
     Dates: start: 20030110
  2. LOXONIN [Concomitant]

REACTIONS (7)
  - ANAEMIA [None]
  - COLON ADENOMA [None]
  - HAEMATOCRIT DECREASED [None]
  - HAEMOGLOBIN DECREASED [None]
  - MELAENA [None]
  - RED BLOOD CELL COUNT DECREASED [None]
  - VISION BLURRED [None]
